FAERS Safety Report 10717024 (Version 2)
Quarter: 2015Q1

REPORT INFORMATION
  Report Type: Spontaneous
  Country: US (occurrence: US)
  Receive Date: 20150116
  Receipt Date: 20150306
  Transmission Date: 20150721
  Serious: Yes (Other)
  Sender: FDA-Public Use
  Company Number: US-JNJFOC-20150104265

PATIENT
  Sex: Male
  Weight: 60.78 kg

DRUGS (19)
  1. SIMVASTATIN. [Concomitant]
     Active Substance: SIMVASTATIN
     Dosage: PM
     Route: 065
  2. ALBUTEROL SULFATE. [Concomitant]
     Active Substance: ALBUTEROL SULFATE
     Route: 065
  3. CARVEDILOL. [Concomitant]
     Active Substance: CARVEDILOL
     Route: 065
  4. XARELTO [Suspect]
     Active Substance: RIVAROXABAN
     Indication: ANTICOAGULANT THERAPY
     Route: 048
     Dates: start: 2015
  5. FOLIC ACID. [Concomitant]
     Active Substance: FOLIC ACID
     Dosage: PM
     Route: 065
  6. FINASTERIDE. [Concomitant]
     Active Substance: FINASTERIDE
     Dosage: PM
     Route: 065
  7. BACTROBAN [Concomitant]
     Active Substance: MUPIROCIN\MUPIROCIN CALCIUM
     Dosage: OCCASIONAL USAGE
     Route: 065
  8. LANOXIN [Concomitant]
     Active Substance: DIGOXIN
     Dosage: PM [M/W/F]
     Route: 065
  9. PULMICORT RESPULES [Concomitant]
     Active Substance: BUDESONIDE
     Route: 065
  10. XARELTO [Suspect]
     Active Substance: RIVAROXABAN
     Indication: ANTICOAGULANT THERAPY
     Route: 048
     Dates: start: 2014, end: 20150204
  11. VOLTAREN [Concomitant]
     Active Substance: DICLOFENAC SODIUM
     Dosage: OCCASIONAL USAGE
     Route: 065
  12. LIDODERM [Concomitant]
     Active Substance: LIDOCAINE
     Dosage: OCCASIONAL USAGE
     Route: 065
  13. TEAR DROP [Concomitant]
     Active Substance: POLYVINYL ALCOHOL
     Dosage: OCCASIONAL USAGE
     Route: 065
  14. TAMSULOSIN [Concomitant]
     Active Substance: TAMSULOSIN
     Dosage: PM
     Route: 065
  15. COZAAR [Concomitant]
     Active Substance: LOSARTAN POTASSIUM
     Dosage: PM
     Route: 065
  16. ROPINIROLE. [Concomitant]
     Active Substance: ROPINIROLE
     Dosage: PM
     Route: 065
  17. IPRATROPIUM BROMIDE. [Concomitant]
     Active Substance: IPRATROPIUM BROMIDE
     Route: 065
  18. FORADIL [Concomitant]
     Active Substance: FORMOTEROL FUMARATE
     Route: 065
  19. VITAMIN D3 [Concomitant]
     Active Substance: CHOLECALCIFEROL
     Dosage: OCCASIONAL USAGE
     Route: 065

REACTIONS (3)
  - Body height decreased [Unknown]
  - Product coating issue [Recovered/Resolved]
  - Weight increased [Not Recovered/Not Resolved]
